FAERS Safety Report 21570506 (Version 2)
Quarter: 2023Q2

REPORT INFORMATION
  Report Type: Other
  Country: US (occurrence: None)
  Receive Date: 20221109
  Receipt Date: 20230605
  Transmission Date: 20230722
  Serious: Yes (Other)
  Sender: FDA-Public Use
  Company Number: US-ROCHE-3215139

PATIENT
  Age: 57 Year
  Sex: Male

DRUGS (1)
  1. XELODA [Suspect]
     Active Substance: CAPECITABINE
     Indication: Squamous cell carcinoma of skin
     Dosage: TAKE 3 TABLET(S) BY MOUTH TWICE A DAY FOR 7 DAYS ON, THEN 7 DAYS OFF, THEN REPEAT
     Route: 048

REACTIONS (4)
  - Blindness [Unknown]
  - Hypoacusis [Unknown]
  - Off label use [Unknown]
  - Product prescribing error [Unknown]
